FAERS Safety Report 6045947-8 (Version None)
Quarter: 2009Q1

REPORT INFORMATION
  Report Type: 
  Country: None (occurrence: None)
  Receive Date: 20090121
  Receipt Date: 20090115
  Transmission Date: 20090719
  Serious: Yes (Hospitalization)
  Sender: FDA-Public Use
  Company Number: AU-MERCK-0809AUS00030

PATIENT
  Sex: Male

DRUGS (1)
  1. VYTORIN [Suspect]
     Route: 048
     Dates: start: 20071101

REACTIONS (1)
  - RENAL CANCER [None]
